FAERS Safety Report 17529881 (Version 7)
Quarter: 2023Q2

REPORT INFORMATION
  Report Type: Spontaneous
  Country: US (occurrence: US)
  Receive Date: 20200312
  Receipt Date: 20230606
  Transmission Date: 20230721
  Serious: No
  Sender: FDA-Public Use
  Company Number: US-BIOGEN-2020BI00837910

PATIENT
  Age: 60 Year
  Sex: Female

DRUGS (16)
  1. TYSABRI [Suspect]
     Active Substance: NATALIZUMAB
     Indication: Multiple sclerosis
     Dosage: INFUSED OVER 1 HOUR
     Route: 050
     Dates: start: 20080605, end: 20190725
  2. TYSABRI [Suspect]
     Active Substance: NATALIZUMAB
     Dosage: INFUSED OVER 1 HOUR
     Route: 050
     Dates: start: 20200320
  3. CALCITRIOL [Concomitant]
     Active Substance: CALCITRIOL
     Route: 050
  4. CARBAMAZEPINE [Concomitant]
     Active Substance: CARBAMAZEPINE
     Route: 050
  5. CHOLESTYRAMINE [Concomitant]
     Active Substance: CHOLESTYRAMINE
     Route: 050
  6. DOCUSATE CALCIUM [Concomitant]
     Active Substance: DOCUSATE CALCIUM
     Route: 050
  7. DULOXETINE [Concomitant]
     Active Substance: DULOXETINE
     Route: 050
  8. EZETIMIBE [Concomitant]
     Active Substance: EZETIMIBE
     Route: 050
  9. LEVOTHYROXINE SODIUM [Concomitant]
     Active Substance: LEVOTHYROXINE SODIUM
     Route: 050
  10. MELATONIN [Concomitant]
     Active Substance: MELATONIN
     Route: 050
  11. METAXALONE [Concomitant]
     Active Substance: METAXALONE
     Route: 050
  12. MODAFINIL [Concomitant]
     Active Substance: MODAFINIL
     Route: 050
  13. TRAMADOL [Concomitant]
     Active Substance: TRAMADOL
     Route: 050
  14. TRAMADOL [Concomitant]
     Active Substance: TRAMADOL
     Route: 050
  15. TRAZODONE [Concomitant]
     Active Substance: TRAZODONE HYDROCHLORIDE
     Route: 050
  16. TRAZODONE [Concomitant]
     Active Substance: TRAZODONE HYDROCHLORIDE
     Route: 050

REACTIONS (3)
  - Prescribed underdose [Unknown]
  - Product dose omission issue [Unknown]
  - Cognitive disorder [Unknown]

NARRATIVE: CASE EVENT DATE: 20200306
